FAERS Safety Report 16691882 (Version 1)
Quarter: 2019Q3

REPORT INFORMATION
  Report Type: Report from Study
  Country: ES (occurrence: ES)
  Receive Date: 20190812
  Receipt Date: 20190812
  Transmission Date: 20191004
  Serious: Yes (Hospitalization, Other)
  Sender: FDA-Public Use
  Company Number: ES-ACCORD-151040

PATIENT
  Age: 86 Year
  Sex: Female

DRUGS (6)
  1. BISOPROLOL [Concomitant]
     Active Substance: BISOPROLOL
     Indication: CARDIAC FAILURE CONGESTIVE
     Route: 048
     Dates: start: 20130712
  2. ATORVASTATIN/ATORVASTATIN CALCIUM [Suspect]
     Active Substance: ATORVASTATIN CALCIUM
     Indication: DYSLIPIDAEMIA
     Route: 048
     Dates: start: 20130103
  3. ALDOCUMAR [Interacting]
     Active Substance: WARFARIN SODIUM
     Indication: ATRIAL FIBRILLATION
     Route: 048
     Dates: start: 20111209, end: 20190502
  4. ADIRO [Interacting]
     Active Substance: ASPIRIN
     Indication: ACUTE MYOCARDIAL INFARCTION
     Route: 048
     Dates: start: 20121120, end: 20190502
  5. JENTADUETO [Concomitant]
     Active Substance: LINAGLIPTIN\METFORMIN HYDROCHLORIDE
     Indication: DIABETES MELLITUS
     Dosage: STRENGTH: 2.5 MG/1000 MG
     Route: 048
     Dates: start: 20140926, end: 20190502
  6. MIXTARD HUMAN 70/30 [Concomitant]
     Active Substance: INSULIN HUMAN
     Indication: DIABETES MELLITUS
     Dosage: STRENGTH: 30 100 IU /ML
     Route: 058
     Dates: start: 20170424, end: 20190502

REACTIONS (2)
  - Lower gastrointestinal haemorrhage [Recovered/Resolved]
  - Drug interaction [Unknown]

NARRATIVE: CASE EVENT DATE: 20190501
